FAERS Safety Report 20693443 (Version 6)
Quarter: 2022Q4

REPORT INFORMATION
  Report Type: Spontaneous
  Country: FR (occurrence: FR)
  Receive Date: 20220410
  Receipt Date: 20221126
  Transmission Date: 20230112
  Serious: Yes (Life-Threatening, Other)
  Sender: FDA-Public Use
  Company Number: None

PATIENT
  Age: 59 Year
  Sex: Male

DRUGS (14)
  1. TRASTUZUMAB [Suspect]
     Active Substance: TRASTUZUMAB
     Indication: Adenocarcinoma gastric
     Dosage: 450 MILLIGRAM, CYCLICAL
     Route: 041
     Dates: start: 20220105, end: 20220216
  2. LANSOPRAZOLE [Suspect]
     Active Substance: LANSOPRAZOLE
     Indication: Abdominal pain upper
     Dosage: 30 MILLIGRAM, QD
     Route: 048
     Dates: start: 202112, end: 20220305
  3. OXALIPLATIN [Suspect]
     Active Substance: OXALIPLATIN
     Indication: Adenocarcinoma gastric
     Dosage: 220 MILLIGRAM, CYCLICAL
     Route: 041
     Dates: start: 20211209, end: 20220216
  4. OXALIPLATIN [Suspect]
     Active Substance: OXALIPLATIN
     Dosage: 220 MILLIGRAM
     Route: 041
     Dates: start: 20220105, end: 20220226
  5. CHLORPROMAZINE [Suspect]
     Active Substance: CHLORPROMAZINE
     Indication: Hiccups
     Dosage: 25 DROP, QD
     Route: 048
     Dates: start: 202112, end: 20220305
  6. CAPECITABINE [Suspect]
     Active Substance: CAPECITABINE
     Indication: Adenocarcinoma gastric
     Dosage: 54.6 GRAM, QMO
     Route: 048
     Dates: start: 20220106, end: 20220302
  7. PREDNISONE [Suspect]
     Active Substance: PREDNISONE
     Indication: Adenocarcinoma gastric
     Dosage: 50 MILLIGRAM, QD
     Route: 048
     Dates: start: 202201, end: 20220302
  8. PREDNISONE [Suspect]
     Active Substance: PREDNISONE
     Indication: Product used for unknown indication
  9. KARDEGIC [Concomitant]
     Active Substance: ASPIRIN DL-LYSINE
     Dosage: 75 MILLIGRAM, QD
     Route: 065
     Dates: start: 202012
  10. OXAZEPAM [Concomitant]
     Active Substance: OXAZEPAM
     Dosage: 20 MILLIGRAM, QD
     Route: 048
     Dates: start: 202201, end: 20220305
  11. FOLIC ACID [Concomitant]
     Active Substance: FOLIC ACID
     Dosage: 5 MILLIGRAM, QD
     Route: 048
  12. FOLIC ACID [Concomitant]
     Active Substance: FOLIC ACID
     Dosage: 5 MILLIGRAM, QD
     Route: 048
  13. CALCIUM PHOSPHATE, DIBASIC, ANHYDROUS\MAGNESIUM GLYCEROPHOSPHATE\PHOSP [Concomitant]
     Active Substance: CALCIUM PHOSPHATE, DIBASIC, ANHYDROUS\MAGNESIUM GLYCEROPHOSPHATE\PHOSPHORIC ACID\SODIUM PHOSPHATE, D
     Dosage: 150 DROP, QD
     Route: 048
     Dates: start: 202201, end: 20220305
  14. FOLIC ACID [Concomitant]
     Active Substance: FOLIC ACID
     Dosage: 5 MILLIGRAM, QD

REACTIONS (1)
  - Status epilepticus [Recovered/Resolved]

NARRATIVE: CASE EVENT DATE: 20220305
